FAERS Safety Report 18139311 (Version 1)
Quarter: 2020Q3

REPORT INFORMATION
  Report Type: Spontaneous
  Country: US (occurrence: US)
  Receive Date: 20200812
  Receipt Date: 20200812
  Transmission Date: 20201103
  Serious: No
  Sender: FDA-Public Use
  Company Number: None

PATIENT
  Age: 65 Year
  Sex: Female
  Weight: 59.85 kg

DRUGS (6)
  1. OMEGA 3 CAPSULES [Concomitant]
     Dates: start: 20100101
  2. PULMICORT 180MCG [Concomitant]
     Dates: start: 20180101
  3. ALBUTEROL INHALER PRN [Concomitant]
  4. LANSOPRAZOLE DELAYED RELEASE [Suspect]
     Active Substance: LANSOPRAZOLE
     Indication: REFLUX LARYNGITIS
     Route: 048
     Dates: start: 20191215, end: 20200803
  5. LIPITOR [Concomitant]
     Active Substance: ATORVASTATIN CALCIUM
     Dates: start: 20050101
  6. RESTASIS [Concomitant]
     Active Substance: CYCLOSPORINE
     Dates: start: 20100101

REACTIONS (1)
  - Diarrhoea [None]

NARRATIVE: CASE EVENT DATE: 20200716
